FAERS Safety Report 5711684-X (Version None)
Quarter: 2008Q2

REPORT INFORMATION
  Report Type: 
  Country: None (occurrence: None)
  Receive Date: 20080421
  Receipt Date: 20080409
  Transmission Date: 20081010
  Serious: Yes (Other)
  Sender: FDA-Public Use
  Company Number: CA-PFIZER INC-2008032353

PATIENT
  Sex: Female

DRUGS (3)
  1. LYRICA [Suspect]
     Indication: BACK PAIN
     Route: 048
  2. ENDOCET [Concomitant]
     Indication: PAIN
     Dosage: TEXT:AS NEEDED
  3. ALL OTHER THERAPEUTIC PRODUCTS [Concomitant]
     Indication: THYROID DISORDER

REACTIONS (3)
  - FATIGUE [None]
  - HEPATITIS [None]
  - JAUNDICE [None]
